FAERS Safety Report 5298580-X (Version None)
Quarter: 2007Q2

REPORT INFORMATION
  Report Type: 
  Country: None (occurrence: None)
  Receive Date: 20070409
  Receipt Date: 20070327
  Transmission Date: 20071010
  Serious: Yes (Hospitalization)
  Sender: FDA-Public Use
  Company Number: 237371

PATIENT
  Age: 56 Year
  Sex: Male
  Weight: 102 kg

DRUGS (6)
  1. RITUXAN [Suspect]
     Indication: RHEUMATOID ARTHRITIS
     Dosage: INTRAVENOUS
     Route: 042
     Dates: start: 20060406
  2. CEPHALEXIN [Concomitant]
  3. PROTONIX [Concomitant]
  4. KLOR-CON [Concomitant]
  5. PREDNISONE TAB [Concomitant]
  6. SULFA ANTIBIOTIC (UNK INGREDIENTS) (SULFA NOS) [Concomitant]

REACTIONS (2)
  - INTESTINAL OPERATION [None]
  - SURGICAL PROCEDURE REPEATED [None]
